FAERS Safety Report 12202002 (Version 2)
Quarter: 2016Q2

REPORT INFORMATION
  Report Type: Spontaneous
  Country: US (occurrence: US)
  Receive Date: 20160322
  Receipt Date: 20160425
  Transmission Date: 20160815
  Serious: Yes (Hospitalization)
  Sender: FDA-Public Use
  Company Number: US-PFIZER INC-2016162368

PATIENT
  Age: 42 Year
  Sex: Female

DRUGS (4)
  1. PHENOBARBITAL. [Suspect]
     Active Substance: PHENOBARBITAL
     Dosage: ^THREE TIMES^
  2. DILANTIN [Suspect]
     Active Substance: PHENYTOIN
     Indication: GENERALISED TONIC-CLONIC SEIZURE
     Dosage: 50 MG, 1 IN MORNING 1 IN AFTERNOON, 1.5 AT BED TIME, 3X/DAY
  3. MEBARAL [Suspect]
     Active Substance: MEPHOBARBITAL
  4. DEPAKENE [Suspect]
     Active Substance: VALPROIC ACID

REACTIONS (1)
  - Tooth abscess [Recovered/Resolved]
